FAERS Safety Report 25135722 (Version 3)
Quarter: 2025Q4

REPORT INFORMATION
  Report Type: Report from Study
  Country: KW (occurrence: KW)
  Receive Date: 20250328
  Receipt Date: 20251029
  Transmission Date: 20260117
  Serious: Yes (Other)
  Sender: NOVARTIS
  Company Number: KW-002147023-NVSC2024KW242376

PATIENT
  Age: 35 Year
  Sex: Male

DRUGS (2)
  1. KESIMPTA [Suspect]
     Active Substance: OFATUMUMAB
     Indication: Multiple sclerosis
     Dosage: 20 MG, OTHER (LOADING DOSE (WEEK 0, WEEK 1,WEEK 2, WEEK 4) AND THEN MONTHLY MAINTENANCE DOSE)
     Route: 058
     Dates: start: 20240305, end: 202502
  2. KESIMPTA [Suspect]
     Active Substance: OFATUMUMAB
     Indication: Relapsing-remitting multiple sclerosis
     Dosage: 20 MG, QMO
     Route: 058
     Dates: end: 202507

REACTIONS (3)
  - Epilepsy [Not Recovered/Not Resolved]
  - Seizure [Recovered/Resolved]
  - Product distribution issue [Not Recovered/Not Resolved]

NARRATIVE: CASE EVENT DATE: 20240101
